FAERS Safety Report 10967283 (Version 1)
Quarter: 2015Q1

REPORT INFORMATION
  Report Type: Report from Study
  Country: NL (occurrence: NL)
  Receive Date: 20150330
  Receipt Date: 20150330
  Transmission Date: 20150721
  Serious: Yes (Death)
  Sender: FDA-Public Use
  Company Number: NL-AMGEN-NLDSL2015028922

PATIENT
  Age: 60 Year
  Sex: Female

DRUGS (1)
  1. XGEVA [Suspect]
     Active Substance: DENOSUMAB
     Indication: PROPHYLAXIS
     Dosage: 1.7 ML, Q4WK 70 MG/ML
     Route: 058
     Dates: start: 20140325, end: 20150325

REACTIONS (1)
  - Death [Fatal]

NARRATIVE: CASE EVENT DATE: 20150325
